FAERS Safety Report 18126369 (Version 1)
Quarter: 2020Q3

REPORT INFORMATION
  Report Type: Spontaneous
  Country: ES (occurrence: ES)
  Receive Date: 20200808
  Receipt Date: 20200808
  Transmission Date: 20201103
  Serious: Yes (Hospitalization, Other)
  Sender: FDA-Public Use
  Company Number: ES-SA-2020SA201796

PATIENT

DRUGS (2)
  1. LANTUS [Suspect]
     Active Substance: INSULIN GLARGINE
     Indication: TYPE 2 DIABETES MELLITUS
     Dosage: UNKNOWN
     Route: 058
  2. TOUJEO [Concomitant]
     Active Substance: INSULIN GLARGINE
     Indication: TYPE 2 DIABETES MELLITUS
     Dosage: 28 IU
     Route: 058

REACTIONS (5)
  - Blood ketone body increased [Recovered/Resolved]
  - Blood glucose increased [Recovered/Resolved]
  - Colitis [Recovered/Resolved]
  - Vomiting [Recovered/Resolved]
  - Intentional dose omission [Recovered/Resolved]
